FAERS Safety Report 6155438-1 (Version None)
Quarter: 2009Q2

REPORT INFORMATION
  Report Type: 
  Country: None (occurrence: None)
  Receive Date: 20090415
  Receipt Date: 20090409
  Transmission Date: 20091009
  Serious: Yes (Other)
  Sender: FDA-Public Use
  Company Number: US-ASTRAZENECA-2009UW09058

PATIENT

DRUGS (1)
  1. SEROQUEL [Suspect]
     Dosage: PATIENT CRUSHED TABLETS AND SNORTED
     Route: 045

REACTIONS (2)
  - INTENTIONAL DRUG MISUSE [None]
  - WRONG DRUG ADMINISTERED [None]
